FAERS Safety Report 4686394-0 (Version None)
Quarter: 2005Q2

REPORT INFORMATION
  Report Type: 
  Country: None (occurrence: None)
  Receive Date: 20050609
  Receipt Date: 20041108
  Transmission Date: 20051028
  Serious: Yes (Hospitalization)
  Sender: FDA-Public Use
  Company Number: CA-ROCHE-385705

PATIENT
  Age: 40 Year
  Sex: Male
  Weight: 92.7 kg

DRUGS (2)
  1. PEG-INTERFERON ALFA 2A (RO 25-8310) [Suspect]
     Route: 058
     Dates: start: 20041008, end: 20050504
  2. RIBAVIRIN [Suspect]
     Route: 048
     Dates: start: 20041008, end: 20050504

REACTIONS (6)
  - CELLULITIS [None]
  - INFECTED SKIN ULCER [None]
  - NEUTROPENIA [None]
  - ROAD TRAFFIC ACCIDENT [None]
  - SOFT TISSUE INJURY [None]
  - STAPHYLOCOCCAL INFECTION [None]
